FAERS Safety Report 13715095 (Version 1)
Quarter: 2017Q3

REPORT INFORMATION
  Report Type: Spontaneous
  Country: US (occurrence: US)
  Receive Date: 20170704
  Receipt Date: 20170704
  Transmission Date: 20171127
  Serious: No
  Sender: FDA-Public Use
  Company Number: US-JNJFOC-20170223394

PATIENT
  Sex: Female
  Weight: 78.47 kg

DRUGS (8)
  1. GLIPIZIDE. [Concomitant]
     Active Substance: GLIPIZIDE
     Route: 065
  2. CRESTOR [Concomitant]
     Active Substance: ROSUVASTATIN CALCIUM
     Route: 065
  3. METFORMIN [Concomitant]
     Active Substance: METFORMIN HYDROCHLORIDE
     Route: 048
  4. INVOKANA [Suspect]
     Active Substance: CANAGLIFLOZIN
     Indication: BLOOD GLUCOSE INCREASED
     Route: 048
  5. IRBESARTAN. [Concomitant]
     Active Substance: IRBESARTAN
     Route: 065
  6. INDAPAMIDE. [Concomitant]
     Active Substance: INDAPAMIDE
     Route: 065
  7. HCTZ [Concomitant]
     Active Substance: HYDROCHLOROTHIAZIDE
     Route: 065
  8. INVOKANA [Suspect]
     Active Substance: CANAGLIFLOZIN
     Indication: BLOOD GLUCOSE INCREASED
     Route: 048
     Dates: start: 20170222

REACTIONS (5)
  - Feeling abnormal [Unknown]
  - Blood glucose increased [Not Recovered/Not Resolved]
  - Nausea [Unknown]
  - Dizziness [Unknown]
  - Unevaluable event [Recovered/Resolved]
